FAERS Safety Report 8221043-6 (Version None)
Quarter: 2012Q1

REPORT INFORMATION
  Report Type: 
  Country: None (occurrence: None)
  Receive Date: 20120320
  Receipt Date: 20120314
  Transmission Date: 20120608
  Serious: Yes (Hospitalization, Other)
  Sender: FDA-Public Use
  Company Number: JP-PFIZER INC-2012066786

PATIENT
  Sex: Female

DRUGS (3)
  1. SUTENT [Suspect]
     Dosage: 50 MG/DAY, (4 DF)
     Dates: start: 20120311
  2. SUTENT [Suspect]
     Indication: RENAL CELL CARCINOMA
     Dosage: 50 MG/DAY, (4 DF)
     Dates: start: 20111207
  3. SUTENT [Suspect]
     Dosage: 50 MG/DAY, (4 DF)

REACTIONS (4)
  - GASTROINTESTINAL OEDEMA [None]
  - ABDOMINAL PAIN [None]
  - NAUSEA [None]
  - DIARRHOEA [None]
